FAERS Safety Report 5884619-7 (Version None)
Quarter: 2008Q3

REPORT INFORMATION
  Report Type: 
  Country: None (occurrence: None)
  Receive Date: 20080911
  Receipt Date: 20080907
  Transmission Date: 20090109
  Serious: Yes (Death)
  Sender: FDA-Public Use
  Company Number: 2008SP018354

PATIENT
  Age: 55 Year
  Sex: Female

DRUGS (4)
  1. NOXAFIL [Suspect]
     Indication: GRAFT VERSUS HOST DISEASE
     Dosage: PO
     Route: 048
     Dates: start: 20080410
  2. VORICONAZOLE [Concomitant]
  3. AMPHOTERICIN B [Concomitant]
  4. CASPOFUNGIN [Concomitant]

REACTIONS (3)
  - BONE MARROW TRANSPLANT [None]
  - BRONCHITIS [None]
  - PANCYTOPENIA [None]
